FAERS Safety Report 17769344 (Version 5)
Quarter: 2022Q3

REPORT INFORMATION
  Report Type: Other
  Country: DE (occurrence: DE)
  Receive Date: 20200512
  Receipt Date: 20220916
  Transmission Date: 20221027
  Serious: Yes (Death, Life-Threatening, Hospitalization, Other)
  Sender: FDA-Public Use
  Company Number: DE-ROCHE-2458917

PATIENT
  Age: 60 Year
  Sex: Male

DRUGS (16)
  1. RITUXIMAB [Suspect]
     Active Substance: RITUXIMAB
     Indication: Encephalitis autoimmune
     Route: 065
  2. RITUXIMAB [Suspect]
     Active Substance: RITUXIMAB
     Indication: Plasma cell myeloma
  3. PREDNISOLONE [Suspect]
     Active Substance: PREDNISOLONE
     Indication: Encephalitis autoimmune
     Dosage: RECEIVED FOR 2 AND HALF YEARS
     Route: 048
  4. PREDNISOLONE [Suspect]
     Active Substance: PREDNISOLONE
     Indication: Plasma cell myeloma
     Dosage: TAPERING-REGIMEN
     Route: 048
  5. DARATUMUMAB [Suspect]
     Active Substance: DARATUMUMAB
     Indication: Encephalitis autoimmune
     Dosage: 9-13 CYCLES
     Route: 042
  6. DARATUMUMAB [Suspect]
     Active Substance: DARATUMUMAB
     Indication: Plasma cell myeloma
     Dosage: 1-8 CYCLES
     Route: 042
  7. BORTEZOMIB [Suspect]
     Active Substance: BORTEZOMIB
     Indication: Plasma cell myeloma
     Dosage: 1-1.3 MG/M2
     Route: 065
  8. BORTEZOMIB [Suspect]
     Active Substance: BORTEZOMIB
     Indication: Encephalitis autoimmune
  9. METHYLPREDNISOLONE [Suspect]
     Active Substance: METHYLPREDNISOLONE
     Indication: Plasma cell myeloma
     Route: 065
  10. METHYLPREDNISOLONE [Suspect]
     Active Substance: METHYLPREDNISOLONE
     Indication: Encephalitis autoimmune
  11. COTRIMOXAZOLE [Concomitant]
     Active Substance: SULFAMETHOXAZOLE\TRIMETHOPRIM
  12. ACYCLOVIR [Concomitant]
     Active Substance: ACYCLOVIR
     Route: 065
  13. HUMAN PLASMA [Concomitant]
     Active Substance: HUMAN PLASMA
     Indication: Encephalitis autoimmune
     Dosage: 6X PLASMA EXCHANGE
     Route: 065
  14. HUMAN PLASMA [Concomitant]
     Active Substance: HUMAN PLASMA
     Dosage: 25X PLASMA EXCHANGE
     Route: 065
  15. HUMAN PLASMA [Concomitant]
     Active Substance: HUMAN PLASMA
     Dosage: 12X PLASMA EXCHANGE
     Route: 065
  16. HUMAN PLASMA [Concomitant]
     Active Substance: HUMAN PLASMA
     Dosage: 8X PLASMA EXCHANGE
     Route: 065

REACTIONS (6)
  - Septic shock [Fatal]
  - Bacterial sepsis [Fatal]
  - Off label use [Fatal]
  - Urinary tract infection [Unknown]
  - Cellulitis [Recovered/Resolved]
  - Condition aggravated [Recovering/Resolving]

NARRATIVE: CASE EVENT DATE: 20170101
